FAERS Safety Report 23546625 (Version 2)
Quarter: 2024Q1

REPORT INFORMATION
  Report Type: Report from Study
  Country: US (occurrence: US)
  Receive Date: 20240221
  Receipt Date: 20240314
  Transmission Date: 20240410
  Serious: Yes (Other)
  Sender: FDA-Public Use
  Company Number: US-TAKEDA-2022TUS092621

PATIENT
  Age: 64 Year
  Sex: Female
  Weight: 56.689 kg

DRUGS (15)
  1. HUMAN IMMUNOGLOBULIN G [Suspect]
     Active Substance: HUMAN IMMUNOGLOBULIN G
     Indication: Polyneuropathy
     Dosage: 90 GRAM
     Route: 042
     Dates: start: 20211028
  2. HUMAN IMMUNOGLOBULIN G [Suspect]
     Active Substance: HUMAN IMMUNOGLOBULIN G
     Dosage: 2000 MILLIGRAM/KILOGRAM
     Route: 042
     Dates: start: 20220721
  3. HUMAN IMMUNOGLOBULIN G [Suspect]
     Active Substance: HUMAN IMMUNOGLOBULIN G
     Dosage: 90 GRAM, Q4WEEKS
     Route: 042
  4. ACETAMINOPHEN [Concomitant]
     Active Substance: ACETAMINOPHEN
     Dosage: UNK
  5. EPINEPHRINE [Concomitant]
     Active Substance: EPINEPHRINE
     Dosage: UNK
  6. CARBIDOPA AND LEVODOPA [Concomitant]
     Active Substance: CARBIDOPA\LEVODOPA
     Dosage: UNK
  7. CYMBALTA [Concomitant]
     Active Substance: DULOXETINE HYDROCHLORIDE
     Dosage: UNK
  8. SODIUM CHLORIDE [Concomitant]
     Active Substance: SODIUM CHLORIDE
     Dosage: UNK
  9. BACLOFEN [Concomitant]
     Active Substance: BACLOFEN
     Dosage: UNK
  10. HEPARIN [Concomitant]
     Active Substance: HEPARIN SODIUM
     Dosage: UNK
  11. LIDOCAINE [Concomitant]
     Active Substance: LIDOCAINE
     Dosage: UNK
  12. DIPHENHYDRAMINE HYDROCHLORIDE [Concomitant]
     Active Substance: DIPHENHYDRAMINE HYDROCHLORIDE
     Dosage: UNK
  13. GABAPENTIN [Concomitant]
     Active Substance: GABAPENTIN
     Dosage: UNK
  14. SINEMET [Concomitant]
     Active Substance: CARBIDOPA\LEVODOPA
     Dosage: UNK
  15. ENTACAPONE [Concomitant]
     Active Substance: ENTACAPONE
     Dosage: UNK

REACTIONS (4)
  - Pneumonia aspiration [Recovered/Resolved]
  - Muscle contracture [Unknown]
  - Urinary tract infection [Unknown]
  - Product use in unapproved indication [Unknown]

NARRATIVE: CASE EVENT DATE: 20211028
